FAERS Safety Report 11069740 (Version 3)
Quarter: 2015Q2

REPORT INFORMATION
  Report Type: Spontaneous
  Country: US (occurrence: US)
  Receive Date: 20150427
  Receipt Date: 20150601
  Transmission Date: 20150821
  Serious: Yes (Other)
  Sender: FDA-Public Use
  Company Number: US-PFIZER INC-2015133158

PATIENT
  Age: 59 Year
  Sex: Female
  Weight: 73 kg

DRUGS (3)
  1. XANAX [Suspect]
     Active Substance: ALPRAZOLAM
     Indication: GASTROINTESTINAL PAIN
     Dosage: 0.5 MG, 1-2 TABLETS DAILY
     Route: 048
  2. XANAX [Suspect]
     Active Substance: ALPRAZOLAM
     Indication: CLAUSTROPHOBIA
  3. XANAX [Suspect]
     Active Substance: ALPRAZOLAM
     Indication: APPETITE DISORDER

REACTIONS (6)
  - Drug dependence [Unknown]
  - Malaise [Not Recovered/Not Resolved]
  - Asthenia [Unknown]
  - Major depression [Unknown]
  - Motion sickness [Not Recovered/Not Resolved]
  - Fatigue [Recovering/Resolving]
